FAERS Safety Report 13080498 (Version 1)
Quarter: 2017Q1

REPORT INFORMATION
  Report Type: Spontaneous
  Country: BR (occurrence: BR)
  Receive Date: 20170103
  Receipt Date: 20170103
  Transmission Date: 20170428
  Serious: Yes (Other)
  Sender: FDA-Public Use
  Company Number: BR-ELI_LILLY_AND_COMPANY-BR201612010417

PATIENT
  Sex: Female
  Weight: 75 kg

DRUGS (10)
  1. HUMALOG [Suspect]
     Active Substance: INSULIN LISPRO
     Indication: DIABETES MELLITUS
     Dosage: 90 IU, QD
     Route: 058
  2. HUMULIN N [Suspect]
     Active Substance: INSULIN HUMAN
     Indication: DIABETES MELLITUS
     Dosage: 20 IU, UNKNOWN
     Route: 065
  3. HUMALOG [Suspect]
     Active Substance: INSULIN LISPRO
     Dosage: 90 IU, QD
     Route: 058
     Dates: start: 20161224
  4. METFORMIN [Concomitant]
     Active Substance: METFORMIN HYDROCHLORIDE
     Dosage: 1 DF, EACH EVENING
     Route: 065
  5. HUMALOG [Suspect]
     Active Substance: INSULIN LISPRO
     Dosage: 90 IU, QD
     Route: 058
     Dates: start: 20161225
  6. METFORMIN [Concomitant]
     Active Substance: METFORMIN HYDROCHLORIDE
     Indication: DIABETES MELLITUS
     Dosage: 1 DF, EACH MORNING
     Route: 065
  7. ALDACTONE [Concomitant]
     Active Substance: SPIRONOLACTONE
     Indication: URINARY TRACT DISORDER
     Dosage: 2 DF, EACH MORNING
     Route: 065
  8. LASIX [Concomitant]
     Active Substance: FUROSEMIDE
     Indication: URINARY TRACT DISORDER
     Dosage: 1 DF, EACH MORNING
     Route: 065
  9. OMEPRAZOLE. [Concomitant]
     Active Substance: OMEPRAZOLE
     Indication: GASTROINTESTINAL DISORDER
     Dosage: 1 DF, QD
     Route: 065
  10. SIMVASTATIN. [Concomitant]
     Active Substance: SIMVASTATIN
     Indication: BLOOD TRIGLYCERIDES
     Dosage: 1 DF, UNKNOWN
     Route: 065

REACTIONS (5)
  - Drug dose omission [Recovered/Resolved]
  - Emotional distress [Unknown]
  - Hypoglycaemia [Recovered/Resolved]
  - Neuropathy peripheral [Unknown]
  - Incorrect product storage [Unknown]
